FAERS Safety Report 5602504-2 (Version None)
Quarter: 2008Q1

REPORT INFORMATION
  Report Type: 
  Country: None (occurrence: None)
  Receive Date: 20080125
  Receipt Date: 20080123
  Transmission Date: 20080703
  Serious: Yes (Other)
  Sender: FDA-Public Use
  Company Number: A0705507A

PATIENT
  Age: 52 Year
  Sex: Female
  Weight: 54 kg

DRUGS (3)
  1. SERETIDE [Suspect]
     Indication: ASTHMA
     Route: 055
     Dates: start: 20060101, end: 20080117
  2. IMIPRAMINE [Concomitant]
     Dates: start: 20060101
  3. LEVOTHYROXINE SODIUM [Concomitant]
     Dates: start: 20070401

REACTIONS (1)
  - VISUAL ACUITY REDUCED [None]
